FAERS Safety Report 24402108 (Version 1)
Quarter: 2024Q4

REPORT INFORMATION
  Report Type: Spontaneous
  Country: US (occurrence: US)
  Receive Date: 20241007
  Receipt Date: 20241007
  Transmission Date: 20250115
  Serious: No
  Sender: DR REDDYS
  Company Number: None

PATIENT
  Age: 6 Decade
  Sex: Male

DRUGS (4)
  1. CAPECITABINE [Suspect]
     Active Substance: CAPECITABINE
     Indication: Oesophageal adenocarcinoma
     Dosage: RECEIVED NINE CYCLES
  2. CAPECITABINE [Suspect]
     Active Substance: CAPECITABINE
     Indication: Gastrooesophageal cancer recurrent
  3. OXALIPLATIN [Suspect]
     Active Substance: OXALIPLATIN
     Indication: Gastrooesophageal cancer recurrent
     Dosage: RECEIVED NINE CYCLES
  4. OXALIPLATIN [Suspect]
     Active Substance: OXALIPLATIN
     Indication: Oesophageal adenocarcinoma

REACTIONS (2)
  - Nausea [Unknown]
  - Fatigue [Unknown]
